FAERS Safety Report 8037373-7 (Version None)
Quarter: 2012Q1

REPORT INFORMATION
  Report Type: 
  Country: None (occurrence: None)
  Receive Date: 20120111
  Receipt Date: 20120109
  Transmission Date: 20120608
  Serious: Yes (Life-Threatening, Other)
  Sender: FDA-Public Use
  Company Number: FR-PFIZER INC-2012005471

PATIENT
  Age: 38 Year
  Sex: Female

DRUGS (20)
  1. IMMUNE GLOBULIN (HUMAN) [Suspect]
     Dosage: UNK
     Route: 042
     Dates: start: 20100714, end: 20100716
  2. ACTONEL [Concomitant]
  3. IMMUNE GLOBULIN (HUMAN) [Suspect]
     Dosage: UNK
     Route: 042
     Dates: start: 20110103, end: 20110105
  4. PREDNISONE TAB [Concomitant]
     Dosage: UNK
  5. ESCITALOPRAM [Concomitant]
  6. ASPIRIN [Concomitant]
  7. IMMUNE GLOBULIN (HUMAN) [Suspect]
     Dosage: UNK
     Route: 042
     Dates: start: 20101102, end: 20101104
  8. IMMUNE GLOBULIN (HUMAN) [Suspect]
     Dosage: UNK
     Route: 042
     Dates: start: 20100811, end: 20100813
  9. IMMUNE GLOBULIN (HUMAN) [Suspect]
     Dosage: UNK
     Route: 042
     Dates: start: 20101006, end: 20101008
  10. TRIPHASIL-21 [Suspect]
     Dosage: UNK
     Route: 048
     Dates: end: 20110101
  11. IMMUNE GLOBULIN (HUMAN) [Suspect]
     Dosage: UNK
     Route: 042
     Dates: start: 20100906, end: 20100908
  12. CACIT [Concomitant]
  13. NEXIUM [Concomitant]
  14. METHOTREXATE SODIUM [Suspect]
     Dosage: 20 MG, WEEKLY
     Route: 058
     Dates: start: 20100709
  15. PREDNISONE TAB [Concomitant]
     Dosage: 1 MG/KG, 1X/DAY
     Route: 048
     Dates: start: 20100708
  16. ZOCOR [Concomitant]
  17. FOLIC ACID [Concomitant]
  18. IMMUNE GLOBULIN (HUMAN) [Suspect]
     Dosage: UNK
     Route: 042
     Dates: start: 20101130, end: 20101202
  19. POTASSIUM CHLORIDE [Concomitant]
  20. XANAX [Concomitant]

REACTIONS (2)
  - PULMONARY EMBOLISM [None]
  - MYOPATHY [None]
